FAERS Safety Report 8367316-8 (Version None)
Quarter: 2012Q2

REPORT INFORMATION
  Report Type: 
  Country: None (occurrence: None)
  Receive Date: 20120517
  Receipt Date: 20120510
  Transmission Date: 20120825
  Serious: Yes (Hospitalization)
  Sender: FDA-Public Use
  Company Number: FR-PFIZER INC-2012114044

PATIENT
  Age: 77 Year
  Sex: Male

DRUGS (13)
  1. EFFEXOR XR [Suspect]
     Dosage: UNK
     Route: 048
     Dates: start: 20120301, end: 20120327
  2. TEGRETOL [Concomitant]
  3. PERINDOPRIL ERBUMINE [Concomitant]
  4. IMOVANE [Concomitant]
  5. ARANESP [Concomitant]
  6. ATORVASTATIN [Concomitant]
  7. BISOPROLOL FUMARATE [Concomitant]
  8. VITAMIN D [Concomitant]
  9. PLAVIX [Concomitant]
  10. AMLODIPINE BESYLATE [Concomitant]
  11. LASIX [Concomitant]
  12. DUPHALAC [Concomitant]
  13. EFFEXOR XR [Suspect]
     Indication: DEPRESSION
     Dosage: UNK
     Route: 048

REACTIONS (2)
  - PERSONALITY DISORDER [None]
  - MANIA [None]
